FAERS Safety Report 17953514 (Version 1)
Quarter: 2020Q2

REPORT INFORMATION
  Report Type: Spontaneous
  Country: DE (occurrence: DE)
  Receive Date: 20200628
  Receipt Date: 20200628
  Transmission Date: 20200714
  Serious: Yes (Hospitalization)
  Sender: FDA-Public Use
  Company Number: NVSC2020DE175866

PATIENT
  Age: 57 Year
  Sex: Female

DRUGS (2)
  1. METRONIDAZOLE. [Suspect]
     Active Substance: METRONIDAZOLE
     Indication: PRODUCT USED FOR UNKNOWN INDICATION
     Dosage: UNK, NK MG, SEIT 16012020
     Route: 065
  2. CEFUROXIM [Suspect]
     Active Substance: CEFUROXIME
     Indication: PRODUCT USED FOR UNKNOWN INDICATION
     Dosage: UNK, NK MG, SEIT 16012020
     Route: 065

REACTIONS (5)
  - Musculoskeletal pain [Unknown]
  - Paresis [Unknown]
  - Paraesthesia [Unknown]
  - Restlessness [Unknown]
  - Tremor [Unknown]
